FAERS Safety Report 4694317-3 (Version None)
Quarter: 2005Q2

REPORT INFORMATION
  Report Type: 
  Country: None (occurrence: None)
  Receive Date: 20050620
  Receipt Date: 20050221
  Transmission Date: 20051028
  Serious: Yes (Hospitalization)
  Sender: FDA-Public Use
  Company Number: JP-SP-2005-00471

PATIENT
  Age: 68 Year
  Sex: Male

DRUGS (2)
  1. IMMUCYST [Suspect]
     Indication: BLADDER CANCER
     Route: 043
     Dates: start: 20041217, end: 20050121
  2. IMMUCYST [Suspect]
     Route: 043
     Dates: start: 20041217, end: 20050121

REACTIONS (3)
  - BLADDER CONSTRICTION [None]
  - HYPERTONIC BLADDER [None]
  - POLLAKIURIA [None]
